FAERS Safety Report 21185118 (Version 1)
Quarter: 2022Q3

REPORT INFORMATION
  Report Type: Spontaneous
  Country: US (occurrence: US)
  Receive Date: 20220808
  Receipt Date: 20220808
  Transmission Date: 20221027
  Serious: Yes (Other)
  Sender: FDA-Public Use
  Company Number: US-PFIZER INC-202201033141

PATIENT
  Age: 91 Year
  Sex: Female

DRUGS (1)
  1. PAXLOVID [Suspect]
     Active Substance: NIRMATRELVIR\RITONAVIR
     Indication: COVID-19 treatment
     Dosage: 8 OF THE 150 MG NIRMATRELVIR PILLS AND 1 OF THE RITONAVIR PILLS
     Dates: start: 20220802

REACTIONS (4)
  - Overdose [Unknown]
  - Delirium [Unknown]
  - Incoherent [Unknown]
  - Pyrexia [Unknown]

NARRATIVE: CASE EVENT DATE: 20220802
